FAERS Safety Report 13522829 (Version 2)
Quarter: 2017Q2

REPORT INFORMATION
  Report Type: Report from Study
  Country: ID (occurrence: ID)
  Receive Date: 20170508
  Receipt Date: 20170509
  Transmission Date: 20170830
  Serious: Yes (Death, Life-Threatening, Hospitalization, Other)
  Sender: FDA-Public Use
  Company Number: ID-ASTRAZENECA-2017SE42112

PATIENT
  Age: 22949 Day
  Sex: Male

DRUGS (3)
  1. MEROPENEM. [Concomitant]
     Active Substance: MEROPENEM
     Dates: start: 20170416
  2. OSIMERTINIB [Suspect]
     Active Substance: OSIMERTINIB
     Indication: LUNG NEOPLASM MALIGNANT
     Route: 048
     Dates: start: 20170304
  3. CIPROFLOXACIN. [Concomitant]
     Active Substance: CIPROFLOXACIN
     Dates: start: 20170418

REACTIONS (5)
  - Malignant neoplasm progression [Fatal]
  - Oxygen saturation decreased [Fatal]
  - Dyspnoea [Fatal]
  - Respiratory failure [Fatal]
  - Decreased appetite [Fatal]

NARRATIVE: CASE EVENT DATE: 20170416
